FAERS Safety Report 12528408 (Version 1)
Quarter: 2016Q3

REPORT INFORMATION
  Report Type: Spontaneous
  Country: US (occurrence: US)
  Receive Date: 20160705
  Receipt Date: 20160705
  Transmission Date: 20161109
  Serious: No
  Sender: FDA-Public Use
  Company Number: US-BAYER-2016-130174

PATIENT
  Sex: Male

DRUGS (2)
  1. NEXAVAR [Suspect]
     Active Substance: SORAFENIB
     Indication: CONNECTIVE TISSUE NEOPLASM
  2. NEXAVAR [Suspect]
     Active Substance: SORAFENIB
     Indication: SOFT TISSUE SARCOMA
     Dosage: UNK

REACTIONS (3)
  - Nausea [None]
  - Off label use [None]
  - Abdominal pain [None]
